FAERS Safety Report 16693932 (Version 1)
Quarter: 2019Q3

REPORT INFORMATION
  Report Type: Spontaneous
  Country: FR (occurrence: FR)
  Receive Date: 20190812
  Receipt Date: 20190812
  Transmission Date: 20191004
  Serious: Yes (Death)
  Sender: FDA-Public Use
  Company Number: FR-MYLANLABS-2019M1074579

PATIENT
  Age: 92 Year
  Sex: Female
  Weight: 51 kg

DRUGS (2)
  1. MODOPAR [Suspect]
     Active Substance: BENSERAZIDE HYDROCHLORIDE\LEVODOPA
     Indication: PRODUCT USED FOR UNKNOWN INDICATION
     Dosage: 125 MILLIGRAM, QD
     Route: 048
     Dates: start: 20190301, end: 20190301
  2. LEPONEX 25 MG [Suspect]
     Active Substance: CLOZAPINE
     Indication: PRODUCT USED FOR UNKNOWN INDICATION
     Dosage: 50 MILLIGRAM, QD
     Route: 048
     Dates: start: 20190301, end: 20190301

REACTIONS (2)
  - Death [Fatal]
  - Product administration error [Fatal]

NARRATIVE: CASE EVENT DATE: 20190301
